FAERS Safety Report 4515765-8 (Version None)
Quarter: 2004Q4

REPORT INFORMATION
  Report Type: 
  Country: None (occurrence: None)
  Receive Date: 20041129
  Receipt Date: 20041112
  Transmission Date: 20050328
  Serious: Yes (Hospitalization)
  Sender: FDA-Public Use
  Company Number: DSA_25400_2004

PATIENT
  Age: 38 Year
  Sex: Female

DRUGS (2)
  1. TAVOR [Suspect]
     Dosage: 23.5 MG ONCE PO
     Route: 048
     Dates: start: 20041109, end: 20041109
  2. ALCOHOL [Suspect]
     Dosage: DF ONCE PO
     Route: 048
     Dates: start: 20041109, end: 20041109

REACTIONS (5)
  - ASPIRATION [None]
  - COMA [None]
  - DRUG INEFFECTIVE [None]
  - INTENTIONAL OVERDOSE [None]
  - RESPIRATORY FAILURE [None]
